FAERS Safety Report 8362448 (Version 3)
Quarter: 2013Q3

REPORT INFORMATION
  Report Type: Spontaneous
  Country: US (occurrence: US)
  Receive Date: 20120130
  Receipt Date: 20130806
  Transmission Date: 20140515
  Serious: Yes (Other)
  Sender: FDA-Public Use
  Company Number: US-ROCHE-1034508

PATIENT
  Age: 21 Year
  Sex: Male

DRUGS (1)
  1. ACCUTANE [Suspect]
     Indication: ACNE
     Route: 065
     Dates: start: 20020603, end: 20021111

REACTIONS (4)
  - Inflammatory bowel disease [Unknown]
  - Anxiety [Unknown]
  - Proctitis ulcerative [Unknown]
  - Blood triglycerides increased [Unknown]
